FAERS Safety Report 8612959-7 (Version None)
Quarter: 2012Q3

REPORT INFORMATION
  Report Type: 
  Country: None (occurrence: None)
  Receive Date: 20120822
  Receipt Date: 20120730
  Transmission Date: 20120928
  Serious: No
  Sender: FDA-Public Use
  Company Number: US-ALLERGAN-1210447US

PATIENT
  Age: 85 Year
  Sex: Male

DRUGS (6)
  1. COREG [Concomitant]
     Indication: BLOOD PRESSURE
  2. ZOCOR [Concomitant]
     Indication: BLOOD CHOLESTEROL INCREASED
  3. NORVASC [Concomitant]
     Indication: HYPERTENSION
     Dosage: 5 MG, UNK
  4. COREG [Concomitant]
     Indication: CARDIAC DISORDER
     Dosage: 12.5 MG, QD
  5. RISPERDAL [Concomitant]
     Indication: ANXIETY
     Dosage: 25 MG, QD
  6. SANCTURA XR [Suspect]
     Indication: URINARY INCONTINENCE
     Dosage: UNK UNK, QAM
     Dates: start: 20120724

REACTIONS (2)
  - CONSTIPATION [None]
  - DRUG INEFFECTIVE [None]
